FAERS Safety Report 6233335-0 (Version None)
Quarter: 2009Q2

REPORT INFORMATION
  Report Type: 
  Country: None (occurrence: None)
  Receive Date: 20090617
  Receipt Date: 20090610
  Transmission Date: 20091009
  Serious: Yes (Other)
  Sender: FDA-Public Use
  Company Number: US-BAXTER-2009BH009814

PATIENT
  Sex: Female

DRUGS (1)
  1. HEPARIN SODIUM INJECTION [Suspect]
     Indication: DRUG USE FOR UNKNOWN INDICATION
     Route: 058

REACTIONS (13)
  - BEDRIDDEN [None]
  - DYSPNOEA [None]
  - ERYTHEMA [None]
  - FATIGUE [None]
  - FLUSHING [None]
  - HEADACHE [None]
  - HYPERTENSION [None]
  - INJECTION SITE NODULE [None]
  - INJECTION SITE PAIN [None]
  - LIVER DISORDER [None]
  - MALAISE [None]
  - RASH [None]
  - VOMITING [None]
